FAERS Safety Report 23942270 (Version 3)
Quarter: 2024Q2

REPORT INFORMATION
  Report Type: Spontaneous
  Country: NZ (occurrence: NZ)
  Receive Date: 20240605
  Receipt Date: 20240614
  Transmission Date: 20240717
  Serious: Yes (Hospitalization, Other)
  Sender: FDA-Public Use
  Company Number: NZ-MYLANLABS-2024M1050448

PATIENT
  Sex: Male

DRUGS (2)
  1. CLOZARIL [Suspect]
     Active Substance: CLOZAPINE
     Indication: Schizophrenia
     Dosage: UNK
     Route: 048
     Dates: start: 20240516
  2. CLOZARIL [Suspect]
     Active Substance: CLOZAPINE
     Dosage: 200 MILLIGRAM, PM (LAST DAILY DOSE WAS 200 MG AT NIGHT)
     Route: 048
     Dates: start: 20240604, end: 20240605

REACTIONS (2)
  - Hospitalisation [Recovered/Resolved]
  - Myocarditis [Unknown]
